FAERS Safety Report 14950250 (Version 1)
Quarter: 2018Q2

REPORT INFORMATION
  Report Type: Spontaneous
  Country: IT (occurrence: IT)
  Receive Date: 20180530
  Receipt Date: 20180530
  Transmission Date: 20180711
  Serious: Yes (Other)
  Sender: FDA-Public Use
  Company Number: IT-ACCORD-048534

PATIENT
  Age: 50 Year
  Sex: Female
  Weight: 95 kg

DRUGS (3)
  1. FLUOROURACIL ACCORD [Suspect]
     Active Substance: FLUOROURACIL
     Indication: BREAST NEOPLASM
     Dosage: STRENGTH: 50 MG/ML
     Dates: start: 20161213, end: 20170203
  2. ENDOXAN BAXTER [Suspect]
     Active Substance: CYCLOPHOSPHAMIDE
     Indication: BREAST NEOPLASM
     Dosage: STRENGTH: 1 G
     Dates: start: 20161213, end: 20170203
  3. FARMORUBICINA PFIZER [Suspect]
     Active Substance: EPIRUBICIN HYDROCHLORIDE
     Indication: BREAST NEOPLASM
     Dosage: STRENGTH: 50 MG
     Route: 040
     Dates: start: 20161213, end: 20170203

REACTIONS (2)
  - Neutropenia [Recovered/Resolved]
  - Leukopenia [Recovered/Resolved]

NARRATIVE: CASE EVENT DATE: 20170203
